FAERS Safety Report 5338540-3 (Version None)
Quarter: 2007Q2

REPORT INFORMATION
  Report Type: 
  Country: None (occurrence: None)
  Receive Date: 20070530
  Receipt Date: 20070517
  Transmission Date: 20071010
  Serious: Yes (Other)
  Sender: FDA-Public Use
  Company Number: MW-GILEAD-2007-0012209

PATIENT
  Sex: Male
  Weight: 2.8 kg

DRUGS (3)
  1. TENOFOVIR DISOPROXIL FUMARATE [Suspect]
     Route: 064
     Dates: start: 20070122, end: 20070122
  2. NEVIRAPINE [Concomitant]
     Route: 064
     Dates: start: 20070122, end: 20070122
  3. NEVIRAPINE [Concomitant]

REACTIONS (4)
  - BLOOD ALBUMIN DECREASED [None]
  - BLOOD PHOSPHORUS DECREASED [None]
  - DRUG EXPOSURE DURING PREGNANCY [None]
  - NEONATAL RESPIRATORY DISTRESS SYNDROME [None]
